FAERS Safety Report 8281759-2 (Version None)
Quarter: 2012Q2

REPORT INFORMATION
  Report Type: 
  Country: None (occurrence: None)
  Receive Date: 20120413
  Receipt Date: 20120404
  Transmission Date: 20120825
  Serious: Yes (Death, Other)
  Sender: FDA-Public Use
  Company Number: US-BAYER-2011-112374

PATIENT
  Age: 28 Year
  Sex: Female
  Weight: 61.678 kg

DRUGS (12)
  1. YASMIN [Suspect]
     Dosage: UNK
     Dates: start: 20030501, end: 20080713
  2. TEMAZEPAM [Concomitant]
  3. AMOXICILLIN [Concomitant]
  4. SPIRONOLACTONE [Concomitant]
  5. COUMADIN [Concomitant]
  6. DROSPIRENONE AND ETHINYL ESTRADIOL [Suspect]
     Dosage: UNK
     Dates: start: 20051208, end: 20090624
  7. LASIX [Concomitant]
  8. ATENOLOL [Concomitant]
  9. LOVENOX [Concomitant]
  10. FERROUS SULFATE TAB [Concomitant]
  11. METOPROLOL TARTRATE [Concomitant]
  12. LANOXIN [Concomitant]

REACTIONS (5)
  - PAIN [None]
  - DEATH [None]
  - MULTI-ORGAN FAILURE [None]
  - GALLBLADDER INJURY [None]
  - SEPSIS [None]
